FAERS Safety Report 6235665-5 (Version None)
Quarter: 2009Q2

REPORT INFORMATION
  Report Type: 
  Country: None (occurrence: None)
  Receive Date: 20090616
  Receipt Date: 20090603
  Transmission Date: 20091009
  Serious: Yes (Hospitalization)
  Sender: FDA-Public Use
  Company Number: 236275K09USA

PATIENT
  Age: 51 Year
  Sex: Male
  Weight: 113 kg

DRUGS (5)
  1. REBIF [Suspect]
     Indication: MULTIPLE SCLEROSIS
     Dosage: 44 MCG, 3 IN 1 WEEKS, SUBCUTANEOUS
     Route: 058
     Dates: start: 20021111
  2. DIOVAN [Concomitant]
  3. SPIRONOLACTONE [Concomitant]
  4. POTASSIUM PILL (POTASSIUM /00031401/) [Concomitant]
  5. OTHER UNSPECIFIED MEDICATION (ALL OTHER THERAPUETIC PRODUCTS) [Concomitant]

REACTIONS (2)
  - CELLULITIS [None]
  - DYSSTASIA [None]
